FAERS Safety Report 5967533-8 (Version None)
Quarter: 2008Q4

REPORT INFORMATION
  Report Type: 
  Country: None (occurrence: None)
  Receive Date: 20081125
  Receipt Date: 20081114
  Transmission Date: 20090506
  Serious: Yes (Other)
  Sender: FDA-Public Use
  Company Number: US-PFIZER INC-2008096922

PATIENT
  Sex: Female
  Weight: 61 kg

DRUGS (2)
  1. DEPO-PROVERA SUSPENSION/INJ [Suspect]
     Indication: CONTRACEPTION
     Dosage: FREQ:1ST INJECTION
     Dates: start: 20080920, end: 20080920
  2. PROZAC [Concomitant]
     Indication: DEPRESSION

REACTIONS (3)
  - ANXIETY [None]
  - DEPRESSION [None]
  - WEIGHT DECREASED [None]
